FAERS Safety Report 6644907-3 (Version None)
Quarter: 2010Q1

REPORT INFORMATION
  Report Type: 
  Country: None (occurrence: None)
  Receive Date: 20100317
  Receipt Date: 20100309
  Transmission Date: 20100710
  Serious: Yes (Death, Hospitalization)
  Sender: FDA-Public Use
  Company Number: 2010US000125

PATIENT
  Age: 63 Year
  Sex: Male
  Weight: 91 kg

DRUGS (4)
  1. ALEFACEPT (ALEFACEPT) INJECTION [Suspect]
     Indication: RENAL TRANSPLANT
     Dosage: 15 MG, WEEKLY, SUBCUTANEOUS
     Route: 058
     Dates: start: 20091024, end: 20091110
  2. PROGRAF [Suspect]
     Indication: RENAL TRANSPLANT
     Dosage: , ORAL
     Route: 048
     Dates: start: 20091024, end: 20100124
  3. MYCOPHENOLIC ACID [Concomitant]
  4. PREDNISONE TAB [Concomitant]

REACTIONS (12)
  - ASPERGILLOSIS [None]
  - BRONCHOPULMONARY ASPERGILLOSIS [None]
  - CARDIAC VALVE VEGETATION [None]
  - CARDIO-RESPIRATORY ARREST [None]
  - ELECTROMECHANICAL DISSOCIATION [None]
  - FUNGAL SEPSIS [None]
  - HYPOKALAEMIA [None]
  - HYPOVOLAEMIA [None]
  - METABOLIC ALKALOSIS [None]
  - POSTOPERATIVE WOUND INFECTION [None]
  - RENAL FAILURE ACUTE [None]
  - SEPTIC SHOCK [None]
